FAERS Safety Report 9170444 (Version 1)
Quarter: 2013Q1

REPORT INFORMATION
  Report Type: Spontaneous
  Country: US (occurrence: US)
  Receive Date: 20130319
  Receipt Date: 20130319
  Transmission Date: 20140127
  Serious: No
  Sender: FDA-Public Use
  Company Number: US-BAYER-2013-033870

PATIENT
  Age: 39 Year
  Sex: Male

DRUGS (1)
  1. MAGNEVIST [Suspect]
     Indication: NUCLEAR MAGNETIC RESONANCE IMAGING
     Dosage: TOTAL DOSE 15ML, DOSE REGIMEN 10ML
     Route: 042
     Dates: start: 20130315, end: 20130315

REACTIONS (1)
  - Vomiting [None]
